FAERS Safety Report 5019392-8 (Version None)
Quarter: 2006Q2

REPORT INFORMATION
  Report Type: 
  Country: None (occurrence: None)
  Receive Date: 20060531
  Receipt Date: 20060518
  Transmission Date: 20061013
  Serious: Yes (Other)
  Sender: FDA-Public Use
  Company Number: 200610601BNE

PATIENT
  Age: 45 Year
  Sex: Female
  Weight: 47 kg

DRUGS (6)
  1. CIPROFLOXACIN HCL [Suspect]
     Indication: VAGINAL DISCHARGE
     Dosage: 250 MG, BID; ORAL
     Route: 048
     Dates: start: 20060504, end: 20060510
  2. METRONIDAZOLE [Suspect]
     Indication: VAGINAL DISCHARGE
     Dosage: 200 MG, TID; ORAL
     Route: 048
     Dates: start: 20060508, end: 20060510
  3. MIZOLASTINE [Concomitant]
  4. LANSOPRAZOLE [Concomitant]
  5. SENNA [Concomitant]
  6. METOCLOPRAMIDE [Concomitant]

REACTIONS (2)
  - ABDOMINAL PAIN UPPER [None]
  - GASTRITIS [None]
